FAERS Safety Report 10242319 (Version 1)
Quarter: 2014Q2

REPORT INFORMATION
  Report Type: Spontaneous
  Country: CA (occurrence: CA)
  Receive Date: 20140617
  Receipt Date: 20140617
  Transmission Date: 20141212
  Serious: Yes (Other)
  Sender: FDA-Public Use
  Company Number: CA-BAXTER-2014BAX030052

PATIENT
  Age: 19 Year
  Sex: Male

DRUGS (9)
  1. DIANEAL PD4 SOLUTION WITH 1.5% DEXTROSE AND 2.5 MEQ/L CALCIUM [Suspect]
     Indication: RENAL CANCER
     Route: 033
     Dates: start: 2013
  2. DIANEAL PD4 SOLUTION WITH 1.5% DEXTROSE AND 2.5 MEQ/L CALCIUM [Suspect]
     Indication: PROCEDURAL COMPLICATION
  3. DIANEAL PD4 SOLUTION WITH 1.5% DEXTROSE AND 2.5 MEQ/L CALCIUM [Suspect]
     Indication: RENAL INJURY
  4. DIANEAL PD4 SOLUTION WITH 2.5% DEXTROSE AND 2.5 MEQ/L CALCIUM [Suspect]
     Indication: RENAL CANCER
     Route: 033
     Dates: start: 2013
  5. DIANEAL PD4 SOLUTION WITH 2.5% DEXTROSE AND 2.5 MEQ/L CALCIUM [Suspect]
     Indication: PROCEDURAL COMPLICATION
  6. DIANEAL PD4 SOLUTION WITH 2.5% DEXTROSE AND 2.5 MEQ/L CALCIUM [Suspect]
     Indication: RENAL INJURY
  7. EXTRANEAL [Suspect]
     Indication: RENAL CANCER
     Route: 033
     Dates: start: 2013
  8. EXTRANEAL [Suspect]
     Indication: PROCEDURAL COMPLICATION
  9. EXTRANEAL [Suspect]
     Indication: RENAL INJURY

REACTIONS (4)
  - Ultrafiltration failure [Recovered/Resolved]
  - Nasopharyngitis [Recovered/Resolved]
  - Dehydration [Recovered/Resolved]
  - Hypertension [Unknown]
